FAERS Safety Report 24109267 (Version 1)
Quarter: 2024Q3

REPORT INFORMATION
  Report Type: Spontaneous
  Country: US (occurrence: US)
  Receive Date: 20240718
  Receipt Date: 20240718
  Transmission Date: 20241017
  Serious: Yes (Life-Threatening, Hospitalization)
  Sender: BAXTER
  Company Number: US-MLMSERVICE-20240702-PI119814-00029-1

PATIENT
  Age: 74 Year
  Sex: Female

DRUGS (27)
  1. ACETAMINOPHEN [Interacting]
     Active Substance: ACETAMINOPHEN
     Dosage: 650 MG EVERY SIX HOURS (INPATIENT MEDICATION)
     Route: 065
  2. ACETAMINOPHEN\CODEINE PHOSPHATE [Interacting]
     Active Substance: ACETAMINOPHEN\CODEINE PHOSPHATE
     Dosage: 15-300 MG AS NEEDED (OUTPATIENT MEDICATION)
     Route: 065
  3. AMLODIPINE [Concomitant]
     Active Substance: AMLODIPINE BESYLATE
     Dosage: 5 MG DAILY (OUTPATIENT MEDICATION)
     Route: 065
  4. APIXABAN [Concomitant]
     Active Substance: APIXABAN
     Dosage: 5 MG TWICE DAILY (OUTPATIENT MEDICATION)
     Route: 065
  5. ASPIRIN [Concomitant]
     Active Substance: ASPIRIN
     Dosage: 81 MG DAILY (OUTPATIENT MEDICATION)
     Route: 065
  6. ASPIRIN [Concomitant]
     Active Substance: ASPIRIN
     Dosage: 325 MG DAILY (INPATIENT MEDICATION)
     Route: 065
  7. CARVEDILOL [Concomitant]
     Active Substance: CARVEDILOL
     Dosage: 3.125 MG TWICE DAILY (OUTPATIENT MEDICATION)
     Route: 065
  8. GABAPENTIN [Concomitant]
     Active Substance: GABAPENTIN
     Dosage: 100 MG THREE TIMES DAILY (OUTPATIENT MEDICATION)
     Route: 065
  9. GABAPENTIN [Concomitant]
     Active Substance: GABAPENTIN
     Dosage: 100 MG THREE TIMES DAILY (INPATIENT MEDICATION)
     Route: 065
  10. LEVOTHYROXINE [Concomitant]
     Active Substance: LEVOTHYROXINE\LEVOTHYROXINE SODIUM
     Dosage: 88 MCG DAILY (OUTPATIENT MEDICATION)
     Route: 065
  11. LEVOTHYROXINE [Concomitant]
     Active Substance: LEVOTHYROXINE\LEVOTHYROXINE SODIUM
     Dosage: 88 MCG DAILY (INPATIENT MEDICATION)
     Route: 065
  12. OMEPRAZOLE [Concomitant]
     Active Substance: OMEPRAZOLE
     Dosage: 20 MG DAILY (OUTPATIENT MEDICATION)
     Route: 065
  13. PROCHLORPERAZINE [Concomitant]
     Active Substance: PROCHLORPERAZINE
     Dosage: 5 MG AS NEEDED (OUTPATIENT MEDICATION)
     Route: 065
  14. SEVELAMER [Concomitant]
     Active Substance: SEVELAMER
     Dosage: 800 MG WITH MEALS (OUTPATIENT MEDICATION)
     Route: 065
  15. ATORVASTATIN [Concomitant]
     Active Substance: ATORVASTATIN
     Dosage: 40 MG DAILY (INPATIENT MEDICATION)
     Route: 065
  16. HEPARIN [Concomitant]
     Active Substance: HEPARIN SODIUM
     Dosage: 5000 UNITS EVERY EIGHT HOURS (INPATIENT MEDICATION)
     Route: 065
  17. HYDROXYCHLOROQUINE [Concomitant]
     Active Substance: HYDROXYCHLOROQUINE
     Dosage: 200 MG EVERY 12 HOURS (INPATIENT MEDICATION)
     Route: 065
  18. PANTOPRAZOLE [Concomitant]
     Active Substance: PANTOPRAZOLE
     Dosage: 40 MG DAILY (INPATIENT MEDICATION)
     Route: 065
  19. POLYETHYLENE GLYCOL [Concomitant]
     Active Substance: POLYETHYLENE GLYCOL
     Dosage: 17 G DAILY (INPATIENT MEDICATION)
     Route: 065
  20. POTASSIUM CHLORIDE [Concomitant]
     Active Substance: POTASSIUM CHLORIDE
     Dosage: 20 MEQ AS NEEDED (INPATIENT MEDICATION)
     Route: 065
  21. AMPICILLIN [Concomitant]
     Active Substance: AMPICILLIN
     Indication: Enterococcal bacteraemia
     Dosage: POSTOPERATIVE
     Route: 065
  22. CEFEPIME [Concomitant]
     Active Substance: CEFEPIME HYDROCHLORIDE
     Indication: Enterococcal bacteraemia
     Dosage: POSTOPERATIVE
     Route: 065
  23. NOREPINEPHRINE [Concomitant]
     Active Substance: NOREPINEPHRINE\NOREPINEPHRINE BITARTRATE
     Indication: Haemodynamic instability
     Dosage: SEPTIC SHOCK NECESSITATING NOREPINEPHRINE FOR HEMODYNAMIC SUPPORT
     Route: 065
  24. NOREPINEPHRINE [Concomitant]
     Active Substance: NOREPINEPHRINE\NOREPINEPHRINE BITARTRATE
     Dosage: INCREASED PRESSOR REQUIREMENT
     Route: 065
  25. VASOPRESSIN [Concomitant]
     Active Substance: VASOPRESSIN
     Indication: Haemodynamic instability
     Dosage: SEPTIC SHOCK NECESSITATING VASOPRESSIN INFUSION FOR HEMODYNAMIC SUPPORT
     Route: 065
  26. VASOPRESSIN [Concomitant]
     Active Substance: VASOPRESSIN
     Dosage: INCREASED PRESSOR REQUIREMENT
     Route: 065
  27. INSULIN NOS [Concomitant]
     Active Substance: INSULIN NOS
     Dosage: TUBE FEEDS WITH INSULIN
     Route: 065

REACTIONS (2)
  - Drug-disease interaction [Unknown]
  - Metabolic acidosis [Recovered/Resolved]
